FAERS Safety Report 5410093-0 (Version None)
Quarter: 2007Q3

REPORT INFORMATION
  Report Type: 
  Country: None (occurrence: None)
  Receive Date: 20070713
  Receipt Date: 20070605
  Transmission Date: 20080115
  Serious: No
  Sender: FDA-Public Use
  Company Number: 2007SP002136

PATIENT
  Age: 58 Year
  Sex: Female
  Weight: 71.6683 kg

DRUGS (4)
  1. LUNESTA [Suspect]
     Indication: INSOMNIA
     Dosage: 2 MG;HS;ORAL
     Route: 048
     Dates: start: 20070201, end: 20070201
  2. TENORMIN [Concomitant]
  3. ZOLOFT [Concomitant]
  4. CELEBREX [Concomitant]

REACTIONS (1)
  - MIDDLE INSOMNIA [None]
